FAERS Safety Report 4956435-1 (Version None)
Quarter: 2006Q1

REPORT INFORMATION
  Report Type: 
  Country: None (occurrence: None)
  Receive Date: 20060328
  Receipt Date: 20060328
  Transmission Date: 20060701
  Serious: Yes (Life-Threatening, Other)
  Sender: FDA-Public Use
  Company Number: None

PATIENT
  Sex: Female
  Weight: 56.6996 kg

DRUGS (1)
  1. ZOLOFT [Suspect]
     Indication: PANIC DISORDER
     Dosage: 100 MG DAILY PO
     Route: 048
     Dates: start: 20010101, end: 20060126

REACTIONS (19)
  - AGITATION [None]
  - ALCOHOL PROBLEM [None]
  - ANOREXIA [None]
  - ANXIETY [None]
  - ARRHYTHMIA [None]
  - BRONCHIAL DISORDER [None]
  - CHRONIC FATIGUE SYNDROME [None]
  - DIARRHOEA [None]
  - DISSOCIATION [None]
  - DIZZINESS [None]
  - FOOD CRAVING [None]
  - HEADACHE [None]
  - IMPULSE-CONTROL DISORDER [None]
  - IRRITABILITY [None]
  - NIGHT SWEATS [None]
  - NIGHTMARE [None]
  - PERSONALITY CHANGE [None]
  - SLEEP DISORDER [None]
  - VISUAL DISTURBANCE [None]
